FAERS Safety Report 25754910 (Version 1)
Quarter: 2025Q3

REPORT INFORMATION
  Report Type: Spontaneous
  Country: BR (occurrence: BR)
  Receive Date: 20250903
  Receipt Date: 20250903
  Transmission Date: 20251020
  Serious: Yes (Life-Threatening, Other)
  Sender: RANBAXY
  Company Number: BR-SUN PHARMACEUTICAL INDUSTRIES INC-2025R1-525462

PATIENT
  Age: 26 Year
  Sex: Female

DRUGS (1)
  1. BUPROPION [Suspect]
     Active Substance: BUPROPION
     Indication: Depression
     Route: 048

REACTIONS (4)
  - Toxicity to various agents [Recovered/Resolved]
  - Myoclonic epilepsy [Recovered/Resolved]
  - Coma [Recovered/Resolved]
  - Condition aggravated [Unknown]
